FAERS Safety Report 12782765 (Version 1)
Quarter: 2016Q3

REPORT INFORMATION
  Report Type: Spontaneous
  Country: US (occurrence: US)
  Receive Date: 20160926
  Receipt Date: 20160926
  Transmission Date: 20161109
  Serious: Yes (Death)
  Sender: FDA-Public Use
  Company Number: None

PATIENT
  Age: 49 Year
  Sex: Female

DRUGS (1)
  1. LYRICA [Suspect]
     Active Substance: PREGABALIN

REACTIONS (4)
  - Epilepsy [None]
  - Angioedema [None]
  - Acute respiratory failure [None]
  - Pneumonia aspiration [None]

NARRATIVE: CASE EVENT DATE: 20160923
